FAERS Safety Report 23920228 (Version 1)
Quarter: 2024Q2

REPORT INFORMATION
  Report Type: Spontaneous
  Country: US (occurrence: US)
  Receive Date: 20240530
  Receipt Date: 20240530
  Transmission Date: 20240716
  Serious: No
  Sender: FDA-Public Use
  Company Number: US-MYLANLABS-2024M1042422

PATIENT
  Age: 30 Year
  Sex: Female

DRUGS (1)
  1. BREYNA [Suspect]
     Active Substance: BUDESONIDE\FORMOTEROL FUMARATE
     Indication: Product used for unknown indication
     Dosage: 80/4.5 MICROGRAM, BID (INHALE 2 PUFFS, TWICE DAILY)
     Route: 055
     Dates: start: 20240505

REACTIONS (2)
  - Wrong technique in product usage process [Unknown]
  - Device defective [Unknown]

NARRATIVE: CASE EVENT DATE: 20240505
